FAERS Safety Report 22642696 (Version 8)
Quarter: 2025Q1

REPORT INFORMATION
  Report Type: Report from Study
  Country: JP (occurrence: JP)
  Receive Date: 20230627
  Receipt Date: 20250113
  Transmission Date: 20250409
  Serious: Yes (Death, Other)
  Sender: NOVARTIS
  Company Number: JP-002147023-NVSJ2023JP010275

PATIENT
  Age: 59 Year
  Sex: Female
  Weight: 51.9 kg

DRUGS (12)
  1. LUTATHERA [Suspect]
     Active Substance: LUTETIUM OXODOTREOTIDE LU-177
     Indication: Pancreatic neuroendocrine tumour
     Route: 042
     Dates: start: 20211124, end: 20211124
  2. LUTATHERA [Suspect]
     Active Substance: LUTETIUM OXODOTREOTIDE LU-177
     Route: 042
  3. LUTATHERA [Suspect]
     Active Substance: LUTETIUM OXODOTREOTIDE LU-177
     Route: 042
  4. LUTATHERA [Suspect]
     Active Substance: LUTETIUM OXODOTREOTIDE LU-177
     Route: 042
  5. LUTATHERA [Suspect]
     Active Substance: LUTETIUM OXODOTREOTIDE LU-177
     Route: 042
     Dates: start: 20230119, end: 20230119
  6. ARGININE\LYSINE [Suspect]
     Active Substance: ARGININE\LYSINE
     Indication: Product used for unknown indication
     Route: 042
  7. ARGININE\LYSINE [Suspect]
     Active Substance: ARGININE\LYSINE
     Route: 042
  8. ARGININE\LYSINE [Suspect]
     Active Substance: ARGININE\LYSINE
     Route: 042
  9. ARGININE\LYSINE [Suspect]
     Active Substance: ARGININE\LYSINE
     Route: 042
  10. ARGININE\LYSINE [Suspect]
     Active Substance: ARGININE\LYSINE
     Route: 042
  11. ALOXI [Concomitant]
     Active Substance: PALONOSETRON HYDROCHLORIDE
     Indication: Prophylaxis of nausea and vomiting
     Route: 065
  12. ALOXI [Concomitant]
     Active Substance: PALONOSETRON HYDROCHLORIDE
     Route: 065

REACTIONS (5)
  - Pancreatic neuroendocrine tumour [Fatal]
  - Metastases to liver [Fatal]
  - Malignant neoplasm progression [Fatal]
  - Myelosuppression [Unknown]
  - Product use issue [Unknown]

NARRATIVE: CASE EVENT DATE: 20230118
